FAERS Safety Report 16853676 (Version 1)
Quarter: 2019Q4

REPORT INFORMATION
  Report Type: Spontaneous
  Country: US (occurrence: US)
  Receive Date: 20190908
  Receipt Date: 20190908
  Transmission Date: 20200122
  Serious: Yes (Other)
  Sender: FDA-Public Use
  Company Number: None

PATIENT
  Age: 28 Year
  Sex: Female
  Weight: 48.6 kg

DRUGS (5)
  1. DR. ZODIAKS (THC VAPING) [Suspect]
     Active Substance: .DELTA.8-TETRAHYDROCANNABINOL\DEVICE\HERBALS
     Indication: ANXIETY
     Route: 055
     Dates: start: 20190107, end: 20190828
  2. HAVEY HITTERS (THC VAPING) [Suspect]
     Active Substance: .DELTA.8-TETRAHYDROCANNABINOL\DEVICE\HERBALS
  3. DR. ZODIAKS (THC VAPING) [Suspect]
     Active Substance: .DELTA.8-TETRAHYDROCANNABINOL\DEVICE\HERBALS
     Indication: DEPRESSION
     Route: 055
     Dates: start: 20190107, end: 20190828
  4. MAMA ORGANICS (VAPING) [Suspect]
     Active Substance: DEVICE\HERBALS
  5. DR. ZODIAKS (THC VAPING) [Suspect]
     Active Substance: .DELTA.8-TETRAHYDROCANNABINOL\DEVICE\HERBALS
     Indication: POLYCYSTIC OVARIES
     Route: 055
     Dates: start: 20190107, end: 20190828

REACTIONS (2)
  - Counterfeit product administered [None]
  - Vomiting [None]

NARRATIVE: CASE EVENT DATE: 20190107
